FAERS Safety Report 4850620-5 (Version None)
Quarter: 2005Q4

REPORT INFORMATION
  Report Type: 
  Country: None (occurrence: None)
  Receive Date: 20051212
  Receipt Date: 20051130
  Transmission Date: 20060501
  Serious: Yes (Hospitalization)
  Sender: FDA-Public Use
  Company Number: CA-AMGEN-US159603

PATIENT
  Sex: Male
  Weight: 70.3 kg

DRUGS (6)
  1. ARANESP [Suspect]
     Indication: RENAL FAILURE CHRONIC
     Route: 042
     Dates: start: 20050708
  2. CALCIUM CARBONATE [Concomitant]
  3. METOPROLOL [Concomitant]
  4. ASPIRIN [Concomitant]
  5. COUMADIN [Concomitant]
  6. LOSEC [Concomitant]

REACTIONS (3)
  - ANAEMIA [None]
  - PERITONITIS BACTERIAL [None]
  - PLEURAL EFFUSION [None]
